FAERS Safety Report 10095553 (Version 1)
Quarter: 2014Q2

REPORT INFORMATION
  Report Type: Report from Study
  Country: US (occurrence: US)
  Receive Date: 20140422
  Receipt Date: 20140422
  Transmission Date: 20141212
  Serious: Yes (Hospitalization)
  Sender: FDA-Public Use
  Company Number: US-SA-2014SA044932

PATIENT
  Age: 28 Year
  Sex: Male

DRUGS (3)
  1. LANTUS [Suspect]
     Indication: DIABETES MELLITUS
     Dosage: DOSE:60 UNIT(S)
     Route: 065
     Dates: start: 20130628
  2. LANTUS [Suspect]
     Indication: DIABETES MELLITUS
     Dosage: DOSE: 80 PLUS UNITS TWICE A DAY
     Route: 065
  3. INSULIN [Concomitant]
     Route: 042

REACTIONS (3)
  - Coronary artery thrombosis [Not Recovered/Not Resolved]
  - Myocardial infarction [Not Recovered/Not Resolved]
  - Drug administration error [Unknown]
